FAERS Safety Report 8370789-8 (Version None)
Quarter: 2012Q2

REPORT INFORMATION
  Report Type: 
  Country: None (occurrence: None)
  Receive Date: 20120518
  Receipt Date: 20120329
  Transmission Date: 20120825
  Serious: Yes (Other)
  Sender: FDA-Public Use
  Company Number: US-ALEXION-A201200564

PATIENT

DRUGS (3)
  1. LANTUS [Concomitant]
     Dosage: 60 UNITS QD
     Route: 058
  2. SOLIRIS [Suspect]
     Indication: PAROXYSMAL NOCTURNAL HAEMOGLOBINURIA
     Dosage: 900 MG, Q2W
     Route: 042
     Dates: start: 20100923
  3. COREG [Concomitant]
     Indication: CORONARY ARTERY DISEASE
     Dosage: 25 MG, BID
     Route: 048

REACTIONS (6)
  - TENDON INJURY [None]
  - ANXIETY [None]
  - OSTEOARTHRITIS [None]
  - INSOMNIA [None]
  - MUSCULOSKELETAL PAIN [None]
  - FALL [None]
